FAERS Safety Report 12694413 (Version 2)
Quarter: 2016Q3

REPORT INFORMATION
  Report Type: Spontaneous
  Country: BR (occurrence: BR)
  Receive Date: 20160829
  Receipt Date: 20160913
  Transmission Date: 20161109
  Serious: Yes (Other)
  Sender: FDA-Public Use
  Company Number: BR-ELI_LILLY_AND_COMPANY-BR201608009903

PATIENT
  Sex: Male
  Weight: 68 kg

DRUGS (6)
  1. CARVEDILOL. [Concomitant]
     Active Substance: CARVEDILOL
     Dosage: UNK, UNKNOWN
     Route: 065
  2. HUMULIN N [Suspect]
     Active Substance: INSULIN HUMAN
     Indication: DIABETES MELLITUS
     Dosage: 10 IU, QD
     Route: 058
     Dates: start: 2016, end: 2016
  3. HUMULIN N [Suspect]
     Active Substance: INSULIN HUMAN
     Dosage: 5 IU, EACH EVENING
     Route: 058
     Dates: start: 2016
  4. AAS [Suspect]
     Active Substance: ASPIRIN
     Indication: PRODUCT USED FOR UNKNOWN INDICATION
     Dosage: UNK UNK, UNKNOWN
     Route: 065
  5. HUMULIN N [Suspect]
     Active Substance: INSULIN HUMAN
     Dosage: 6 IU, EACH MORNING
     Route: 058
     Dates: start: 2016
  6. SINVASTATINA [Concomitant]
     Active Substance: SIMVASTATIN
     Dosage: UNK, UNKNOWN
     Route: 065

REACTIONS (10)
  - Muscle spasms [Unknown]
  - Blood glucose decreased [Unknown]
  - Pneumonia [Recovered/Resolved]
  - Malaise [Unknown]
  - Drug dose omission [Unknown]
  - Haemorrhage [Unknown]
  - Cholelithiasis [Unknown]
  - Blood glucose increased [Unknown]
  - Pulmonary oedema [Unknown]
  - Ischaemia [Unknown]

NARRATIVE: CASE EVENT DATE: 2016
